FAERS Safety Report 5714987-8 (Version None)
Quarter: 2008Q2

REPORT INFORMATION
  Report Type: 
  Country: None (occurrence: None)
  Receive Date: 20080423
  Receipt Date: 20080418
  Transmission Date: 20081010
  Serious: Yes (Hospitalization)
  Sender: FDA-Public Use
  Company Number: US-GENENTECH-254355

PATIENT
  Sex: Male
  Weight: 49.887 kg

DRUGS (8)
  1. NUTROPIN AQ [Suspect]
     Indication: HYPOPITUITARISM
     Dosage: 2.4 MG, QD
     Route: 058
     Dates: start: 20070308
  2. ADVAIR HFA [Concomitant]
     Indication: DRUG USE FOR UNKNOWN INDICATION
     Dosage: 500 MG, BID
     Route: 048
  3. FLOVENT [Concomitant]
     Indication: DRUG USE FOR UNKNOWN INDICATION
     Dosage: 2 PUFF, BID
  4. ALBUTEROL [Concomitant]
     Indication: DRUG USE FOR UNKNOWN INDICATION
     Dosage: UNK, PRN
  5. NASONEX [Concomitant]
     Indication: DRUG USE FOR UNKNOWN INDICATION
  6. ZYRTEC [Concomitant]
     Indication: DRUG USE FOR UNKNOWN INDICATION
     Dosage: 1 UNK, QHS
     Route: 048
  7. SINGULAIR [Concomitant]
     Indication: DRUG USE FOR UNKNOWN INDICATION
     Dosage: 10 MG, QHS
     Route: 048
  8. LUPRON [Concomitant]
     Indication: DRUG USE FOR UNKNOWN INDICATION
     Dosage: 11.25 MG, Q4W
     Route: 030

REACTIONS (1)
  - ASTHMA [None]
